FAERS Safety Report 6087825-4 (Version None)
Quarter: 2009Q1

REPORT INFORMATION
  Report Type: 
  Country: None (occurrence: None)
  Receive Date: 20090223
  Receipt Date: 20090212
  Transmission Date: 20090719
  Serious: Yes (Death, Hospitalization, Other)
  Sender: FDA-Public Use
  Company Number: PH-BAXTER-2009BH001889

PATIENT
  Age: 13 Year
  Sex: Male

DRUGS (1)
  1. DIANEAL [Suspect]
     Indication: RENAL FAILURE
     Route: 033
     Dates: start: 20080509, end: 20090126

REACTIONS (5)
  - BLOODY PERITONEAL EFFLUENT [None]
  - CEREBROVASCULAR ACCIDENT [None]
  - COMA [None]
  - HYPERTENSION [None]
  - RENAL FAILURE CHRONIC [None]
